FAERS Safety Report 5571080-5 (Version None)
Quarter: 2007Q4

REPORT INFORMATION
  Report Type: 
  Country: None (occurrence: None)
  Receive Date: 20071221
  Receipt Date: 20071212
  Transmission Date: 20080405
  Serious: Yes (Other)
  Sender: FDA-Public Use
  Company Number: FR-SANOFI-SYNTHELABO-A02200703816

PATIENT
  Age: 68 Year
  Sex: Female

DRUGS (1)
  1. PLAQUENIL [Suspect]
     Indication: DRUG USE FOR UNKNOWN INDICATION
     Route: 048
     Dates: start: 19970101

REACTIONS (3)
  - LUNG NEOPLASM [None]
  - THYROID NEOPLASM [None]
  - TONGUE DISORDER [None]
